FAERS Safety Report 11294023 (Version 1)
Quarter: 2015Q3

REPORT INFORMATION
  Report Type: Report from Study
  Country: US (occurrence: US)
  Receive Date: 20150722
  Receipt Date: 20150722
  Transmission Date: 20151125
  Serious: No
  Sender: FDA-Public Use
  Company Number: US-AMGEN-USASL2015046670

PATIENT
  Age: 80 Year
  Sex: Female

DRUGS (5)
  1. REVLIMID [Concomitant]
     Active Substance: LENALIDOMIDE
     Indication: PLASMA CELL MYELOMA
  2. VITAMINS                           /00067501/ [Concomitant]
     Active Substance: VITAMINS
  3. KYPROLIS [Suspect]
     Active Substance: CARFILZOMIB
     Indication: PLASMA CELL MYELOMA
     Dosage: UNK UNK, 2 TIMES/WK
     Route: 042
     Dates: start: 2015
  4. ACYCLOVIR                          /00587301/ [Concomitant]
     Active Substance: ACYCLOVIR
     Indication: HERPES ZOSTER
     Dosage: 800 MG, UNK
  5. DEXAMETHASONE. [Concomitant]
     Active Substance: DEXAMETHASONE
     Indication: PLASMA CELL MYELOMA

REACTIONS (6)
  - Weight decreased [Unknown]
  - Tooth fracture [Unknown]
  - Dysgeusia [Unknown]
  - Hypersomnia [Unknown]
  - Muscle spasms [Unknown]
  - Burning sensation [Unknown]

NARRATIVE: CASE EVENT DATE: 201505
